FAERS Safety Report 5761594-7 (Version None)
Quarter: 2008Q2

REPORT INFORMATION
  Report Type: 
  Country: None (occurrence: None)
  Receive Date: 20080606
  Receipt Date: 20080527
  Transmission Date: 20081010
  Serious: Yes (Other)
  Sender: FDA-Public Use
  Company Number: BR-PFIZER INC-2008037560

PATIENT
  Sex: Female
  Weight: 73 kg

DRUGS (3)
  1. PROVERA [Suspect]
     Indication: MENSTRUAL DISCOMFORT
     Route: 048
     Dates: start: 20080201, end: 20080430
  2. DESOBESI-M [Concomitant]
     Indication: OBESITY
  3. FLUOXETINE HCL [Concomitant]
     Indication: ANXIETY

REACTIONS (4)
  - ENDOMETRIOSIS [None]
  - GASTROINTESTINAL DISORDER [None]
  - OVARIAN DISORDER [None]
  - POLYCYSTIC OVARIES [None]
